FAERS Safety Report 16225238 (Version 1)
Quarter: 2019Q2

REPORT INFORMATION
  Report Type: Spontaneous
  Country: US (occurrence: US)
  Receive Date: 20190422
  Receipt Date: 20190422
  Transmission Date: 20190711
  Serious: Yes (Death, Other)
  Sender: FDA-Public Use
  Company Number: US-PFIZER INC-2018268755

PATIENT
  Age: 65 Year
  Sex: Female
  Weight: 68 kg

DRUGS (1)
  1. IBRANCE [Suspect]
     Active Substance: PALBOCICLIB
     Indication: BREAST CANCER METASTATIC
     Dosage: 125 MG, CYCLIC (ONCE A DAY FOR 21 DAYS ON, 7 OFF)
     Route: 048
     Dates: start: 201711

REACTIONS (2)
  - Product dose omission [Unknown]
  - Death [Fatal]

NARRATIVE: CASE EVENT DATE: 20180604
